FAERS Safety Report 23817824 (Version 2)
Quarter: 2024Q2

REPORT INFORMATION
  Report Type: Spontaneous
  Country: DE (occurrence: DE)
  Receive Date: 20240506
  Receipt Date: 20240520
  Transmission Date: 20240716
  Serious: No
  Sender: FDA-Public Use
  Company Number: DE-NOVOPROD-1212185

PATIENT
  Age: 17 Year
  Sex: Female

DRUGS (5)
  1. NOVORAPID [Suspect]
     Active Substance: INSULIN ASPART
     Dosage: 14 IU, QD( 4-4-6)
  2. NOVORAPID [Suspect]
     Active Substance: INSULIN ASPART
     Dosage: 18 IU, QD( 4-6-8)
  3. NOVORAPID [Suspect]
     Active Substance: INSULIN ASPART
     Indication: Product used for unknown indication
     Dosage: 12 IU, QD(4-4-4)
  4. NOVORAPID [Suspect]
     Active Substance: INSULIN ASPART
     Dosage: 26 IU, QD( 4-10-12)
  5. LANTUS [Concomitant]
     Active Substance: INSULIN GLARGINE
     Indication: Product used for unknown indication
     Dosage: UNK

REACTIONS (1)
  - Maternal exposure during pregnancy [Recovered/Resolved]
